FAERS Safety Report 25171712 (Version 1)
Quarter: 2025Q2

REPORT INFORMATION
  Report Type: Spontaneous
  Country: US (occurrence: US)
  Receive Date: 20250408
  Receipt Date: 20250408
  Transmission Date: 20250717
  Serious: Yes (Other)
  Sender: ALMIRALL
  Company Number: US-ALMIRALL, LLC-2025AQU000009

PATIENT
  Age: 30 Year
  Sex: Female

DRUGS (1)
  1. SEYSARA [Suspect]
     Active Substance: SARECYCLINE HYDROCHLORIDE
     Indication: Acne
     Route: 065
     Dates: end: 202502

REACTIONS (2)
  - Hepatitis [Unknown]
  - Hepatic enzyme increased [Recovered/Resolved]

NARRATIVE: CASE EVENT DATE: 20250201
